FAERS Safety Report 20408926 (Version 1)
Quarter: 2022Q1

REPORT INFORMATION
  Report Type: Spontaneous
  Country: US (occurrence: US)
  Receive Date: 20220201
  Receipt Date: 20220201
  Transmission Date: 20220423
  Serious: No
  Sender: FDA-Public Use
  Company Number: US-ELI_LILLY_AND_COMPANY-US202202000021

PATIENT
  Sex: Male

DRUGS (4)
  1. CIALIS [Suspect]
     Active Substance: TADALAFIL
     Indication: Erectile dysfunction
     Dosage: 5 MG, BID
     Route: 048
     Dates: start: 2011
  2. CIALIS [Suspect]
     Active Substance: TADALAFIL
     Dosage: 5 MG, BID
     Route: 048
     Dates: start: 2021
  3. PRILOSEC [Concomitant]
     Active Substance: OMEPRAZOLE MAGNESIUM
     Indication: Gastric pH
     Dosage: 20 MG, DAILY
  4. PEPCID [Concomitant]
     Active Substance: FAMOTIDINE
     Indication: Gastric pH
     Dosage: 40 MG, OTHER (AT NIGHT)

REACTIONS (2)
  - Feeling abnormal [Not Recovered/Not Resolved]
  - Drug ineffective [Recovered/Resolved]
